FAERS Safety Report 12235348 (Version 1)
Quarter: 2016Q2

REPORT INFORMATION
  Report Type: Spontaneous
  Country: CA (occurrence: CA)
  Receive Date: 20160404
  Receipt Date: 20160404
  Transmission Date: 20160815
  Serious: Yes (Life-Threatening, Hospitalization)
  Sender: FDA-Public Use
  Company Number: CA-BAXTER-2016BAX016464

PATIENT
  Age: 81 Year
  Sex: Female

DRUGS (5)
  1. LIDOCAINE HYDROCHLORIDE IN 5% DEXTROSE FOR INTRAVENOUS INFUSION [Suspect]
     Active Substance: LIDOCAINE HYDROCHLORIDE
     Indication: NEUROMUSCULAR BLOCKADE
     Route: 065
  2. MIDAZOLAM [Suspect]
     Active Substance: MIDAZOLAM\MIDAZOLAM HYDROCHLORIDE
     Indication: ENDOTRACHEAL INTUBATION
     Dosage: SOLUTION INTRAMUSCULAR
     Route: 042
  3. LIDOCAINE. [Suspect]
     Active Substance: LIDOCAINE
     Indication: NEUROMUSCULAR BLOCKADE
     Route: 061
  4. LIDOCAINE HYDROCHLORIDE IN 5% DEXTROSE FOR INTRAVENOUS INFUSION [Suspect]
     Active Substance: LIDOCAINE HYDROCHLORIDE
     Indication: OFF LABEL USE
  5. GLYCOPYRROLATE. [Suspect]
     Active Substance: GLYCOPYRROLATE
     Indication: ENDOTRACHEAL INTUBATION
     Dosage: LIQUID INTRAMUSCULAR
     Route: 042

REACTIONS (5)
  - Upper airway obstruction [Unknown]
  - Tachycardia [Unknown]
  - Hypotension [Unknown]
  - Pulse absent [Unknown]
  - Bradycardia [Unknown]
